FAERS Safety Report 8729504 (Version 2)
Quarter: 2012Q4

REPORT INFORMATION
  Report Type: Report from Study
  Country: US (occurrence: US)
  Receive Date: 20120817
  Receipt Date: 20120909
  Transmission Date: 20130627
  Serious: Yes (Hospitalization, Other)
  Sender: FDA-Public Use
  Company Number: US-ABBOTT-12P-163-0967664-00

PATIENT
  Age: 54 Year
  Sex: Female
  Weight: 49.03 kg

DRUGS (1)
  1. HUMIRA 40 MG/0.8 ML PEN [Suspect]
     Indication: CROHN^S DISEASE
     Dates: start: 201205, end: 201208

REACTIONS (5)
  - Pyrexia [Unknown]
  - Pelvic abscess [Recovering/Resolving]
  - Abdominal pain [Unknown]
  - Intestinal perforation [Unknown]
  - Colonic stenosis [Unknown]
